FAERS Safety Report 6427238-6 (Version None)
Quarter: 2009Q4

REPORT INFORMATION
  Report Type: 
  Country: None (occurrence: None)
  Receive Date: 20091104
  Receipt Date: 20091028
  Transmission Date: 20100525
  Serious: Yes (Other)
  Sender: FDA-Public Use
  Company Number: A0814489A

PATIENT
  Age: 61 Year
  Sex: Female
  Weight: 139.1 kg

DRUGS (13)
  1. REQUIP [Suspect]
     Indication: RESTLESS LEGS SYNDROME
     Route: 048
     Dates: start: 20060201
  2. ZOLOFT [Concomitant]
     Dates: end: 20090201
  3. EFFEXOR [Concomitant]
     Dates: end: 20090101
  4. BENICAR [Concomitant]
  5. NEXIUM [Concomitant]
  6. SPIRIVA [Concomitant]
  7. SINGULAIR [Concomitant]
  8. DETROL [Concomitant]
  9. BENICAR [Concomitant]
  10. CRESTOR [Concomitant]
  11. ADVAIR DISKUS 100/50 [Concomitant]
  12. LYRICA [Concomitant]
     Dates: end: 20080301
  13. PREDNISONE TAB [Concomitant]

REACTIONS (2)
  - GAMBLING [None]
  - SUICIDAL IDEATION [None]
